FAERS Safety Report 9914986 (Version 1)
Quarter: 2014Q1

REPORT INFORMATION
  Report Type: Spontaneous
  Country: GB (occurrence: GB)
  Receive Date: 20140220
  Receipt Date: 20140220
  Transmission Date: 20141002
  Serious: Yes (Other)
  Sender: FDA-Public Use
  Company Number: PHHY2014GB018480

PATIENT
  Age: 43 Year
  Sex: Female

DRUGS (2)
  1. CLINDAMYCIN SANDOZ [Suspect]
     Dosage: 300 MG, QD
     Route: 048
  2. CLINDAMYCIN SANDOZ [Suspect]
     Dosage: 600 MG, QD
     Route: 048

REACTIONS (1)
  - Dysphagia [Not Recovered/Not Resolved]
